FAERS Safety Report 6819310-3 (Version None)
Quarter: 2010Q3

REPORT INFORMATION
  Report Type: 
  Country: None (occurrence: None)
  Receive Date: 20100707
  Receipt Date: 20100701
  Transmission Date: 20110219
  Serious: Yes (Death, Hospitalization, Disabling)
  Sender: FDA-Public Use
  Company Number: DE-NAPPMUNDI-DEU-2010-0005835

PATIENT
  Sex: Male
  Weight: 73 kg

DRUGS (2)
  1. BTDS 20 MG [Suspect]
     Indication: CANCER PAIN
     Dosage: 20 MCG, Q1H
     Route: 062
     Dates: start: 20091028
  2. METAMIZOLE [Concomitant]

REACTIONS (2)
  - DYSPNOEA [None]
  - PNEUMONIA [None]
